FAERS Safety Report 10667227 (Version 1)
Quarter: 2014Q4

REPORT INFORMATION
  Report Type: Spontaneous
  Country: IT (occurrence: IT)
  Receive Date: 20141222
  Receipt Date: 20141222
  Transmission Date: 20150529
  Serious: Yes (Other)
  Sender: FDA-Public Use
  Company Number: IT-TEVA-530037ISR

PATIENT
  Age: 122 Month

DRUGS (3)
  1. THIOTEPA. [Suspect]
     Active Substance: THIOTEPA
     Indication: NEUROBLASTOMA
     Dosage: 250 MG/M 2 DAY 1-2-3
     Route: 065
  2. CYCLOPHOSPHAMIDE. [Suspect]
     Active Substance: CYCLOPHOSPHAMIDE
     Indication: NEUROBLASTOMA
     Dosage: 60 MG/KG DAY 4-5
     Route: 065
  3. ETOPOSIDE. [Suspect]
     Active Substance: ETOPOSIDE
     Indication: NEUROBLASTOMA
     Dosage: 200 MG/M2 DAY 1-2-3
     Route: 065

REACTIONS (3)
  - Hepatotoxicity [Recovering/Resolving]
  - Nodular regenerative hyperplasia [Recovering/Resolving]
  - Focal nodular hyperplasia [Recovering/Resolving]
